FAERS Safety Report 13600773 (Version 2)
Quarter: 2017Q3

REPORT INFORMATION
  Report Type: Report from Study
  Country: CR (occurrence: CR)
  Receive Date: 20170601
  Receipt Date: 20170927
  Transmission Date: 20171127
  Serious: Yes (Other)
  Sender: FDA-Public Use
  Company Number: PHHY2016CR020206

PATIENT
  Age: 45 Year
  Sex: Female
  Weight: 63.5 kg

DRUGS (1)
  1. LDK378 [Suspect]
     Active Substance: CERITINIB
     Indication: LUNG ADENOCARCINOMA
     Dosage: 750 MG, QD
     Route: 048
     Dates: start: 20151218

REACTIONS (21)
  - Upper respiratory tract infection [Recovered/Resolved]
  - Dry eye [Not Recovered/Not Resolved]
  - Dermatitis allergic [Recovered/Resolved]
  - Nausea [Recovered/Resolved]
  - Tonic convulsion [Recovered/Resolved]
  - Central nervous system lesion [Recovered/Resolved]
  - Cough [Recovered/Resolved]
  - Diarrhoea [Recovered/Resolved]
  - Pleuritic pain [Recovered/Resolved]
  - Cough [Recovered/Resolved]
  - Metastases to central nervous system [Unknown]
  - Brain oedema [Recovered/Resolved]
  - Gastritis [Recovered/Resolved]
  - Seizure [Unknown]
  - Rhinorrhoea [Recovered/Resolved]
  - Rhinorrhoea [Recovered/Resolved]
  - Arthralgia [Recovered/Resolved]
  - Loss of consciousness [Recovered/Resolved]
  - Vomiting [Not Recovered/Not Resolved]
  - Dermatitis allergic [Recovered/Resolved]
  - Upper respiratory tract infection [Unknown]

NARRATIVE: CASE EVENT DATE: 20160102
